FAERS Safety Report 16212411 (Version 6)
Quarter: 2020Q1

REPORT INFORMATION
  Report Type: Other
  Country: ES (occurrence: ES)
  Receive Date: 20190418
  Receipt Date: 20200108
  Transmission Date: 20200409
  Serious: Yes (Life-Threatening, Other)
  Sender: FDA-Public Use
  Company Number: ES-CELLTRION INC.-2019ES020443

PATIENT

DRUGS (4)
  1. VENETOCLAX. [Suspect]
     Active Substance: VENETOCLAX
     Dosage: DOSAGE FORM: UNSPECIFIED
     Route: 048
     Dates: start: 20190225, end: 201903
  2. VENETOCLAX. [Suspect]
     Active Substance: VENETOCLAX
     Indication: CHRONIC LYMPHOCYTIC LEUKAEMIA
     Dosage: 20 MG, QD (DOSAGE FORM: UNSPECIFIED)
     Route: 048
     Dates: start: 20190104, end: 20190107
  3. RITUXIMAB (UNKNOWN) [Suspect]
     Active Substance: RITUXIMAB
     Indication: CHRONIC LYMPHOCYTIC LEUKAEMIA
     Dosage: DOSAGE FORM: UNSPECIFIED
     Route: 065
     Dates: start: 201705, end: 20190102
  4. IBRUTINIB [Suspect]
     Active Substance: IBRUTINIB
     Indication: CHRONIC LYMPHOCYTIC LEUKAEMIA
     Dosage: UNK
     Route: 065
     Dates: start: 201705, end: 20190102

REACTIONS (16)
  - Tumour lysis syndrome [Unknown]
  - Neutropenia [Recovered/Resolved]
  - Oedema peripheral [Unknown]
  - Aphasia [Recovered/Resolved]
  - Chronic lymphocytic leukaemia [Unknown]
  - Richter^s syndrome [Unknown]
  - Diarrhoea [Unknown]
  - Blood lactate dehydrogenase increased [Unknown]
  - Cholestasis [Unknown]
  - Liver disorder [Unknown]
  - Campylobacter gastroenteritis [Unknown]
  - Streptococcus test positive [Unknown]
  - Hepatosplenomegaly [Unknown]
  - Lymphadenopathy [Unknown]
  - Leukocytosis [Unknown]
  - Hyperhidrosis [Unknown]

NARRATIVE: CASE EVENT DATE: 2019
